FAERS Safety Report 8444728-5 (Version None)
Quarter: 2012Q2

REPORT INFORMATION
  Report Type: 
  Country: None (occurrence: None)
  Receive Date: 20120611
  Receipt Date: 20120526
  Transmission Date: 20120825
  Serious: Yes (Hospitalization)
  Sender: FDA-Public Use
  Company Number: 2012AP001623

PATIENT
  Age: 63 Year
  Sex: Female

DRUGS (12)
  1. FAMOTIDINE [Concomitant]
  2. SITAGLIPTIN [Concomitant]
  3. ATORVASTATIN CALCIUM [Concomitant]
  4. ESTROPIPATE [Concomitant]
  5. MEDROXYPROGESTERONE [Concomitant]
  6. PAROXETINE HYDROCHLORIDE [Suspect]
     Indication: PRODUCT USED FOR UNKNOWN INDICATION
     Dosage: 40 MG;QD
  7. LORAZEPAM [Concomitant]
  8. OMEPRAZOLE [Concomitant]
  9. QUETIAPINE FUMARATE [Suspect]
     Indication: PRODUCT USED FOR UNKNOWN INDICATION
     Dosage: 800 MG;QD;PO
     Route: 048
  10. MONTELUKAST [Concomitant]
  11. TRIHEXYPHENIDYL HCL [Concomitant]
  12. VITAMIN D [Concomitant]

REACTIONS (16)
  - HEPATIC ENZYME INCREASED [None]
  - BLOOD GLUCOSE INCREASED [None]
  - HYPOKALAEMIA [None]
  - HYPONATRAEMIA [None]
  - DELIRIUM [None]
  - GASTROINTESTINAL HAEMORRHAGE [None]
  - COGNITIVE DISORDER [None]
  - DISORIENTATION [None]
  - LOBAR PNEUMONIA [None]
  - MOOD SWINGS [None]
  - HAEMORRHAGIC ANAEMIA [None]
  - ELECTROCARDIOGRAM QT PROLONGED [None]
  - ABNORMAL BEHAVIOUR [None]
  - CARBON DIOXIDE DECREASED [None]
  - CONFUSIONAL STATE [None]
  - ASPARTATE AMINOTRANSFERASE INCREASED [None]
